FAERS Safety Report 5209544-6 (Version None)
Quarter: 2007Q1

REPORT INFORMATION
  Report Type: 
  Country: None (occurrence: None)
  Receive Date: 20070116
  Receipt Date: 20070108
  Transmission Date: 20070707
  Serious: Yes (Hospitalization)
  Sender: FDA-Public Use
  Company Number: FR-PFIZER INC-2007002312

PATIENT
  Age: 60 Year
  Sex: Male

DRUGS (2)
  1. TAHOR [Suspect]
  2. LAMISIL [Interacting]
     Indication: FUNGAL INFECTION

REACTIONS (6)
  - DRUG INTERACTION [None]
  - FUNGAL INFECTION [None]
  - MUSCULAR WEAKNESS [None]
  - PARAESTHESIA [None]
  - PRURITUS [None]
  - RASH [None]
